FAERS Safety Report 17444370 (Version 1)
Quarter: 2020Q1

REPORT INFORMATION
  Report Type: Spontaneous
  Country: US (occurrence: US)
  Receive Date: 20200221
  Receipt Date: 20200221
  Transmission Date: 20200409
  Serious: No
  Sender: FDA-Public Use
  Company Number: None

PATIENT
  Age: 68 Year
  Sex: Male
  Weight: 69.75 kg

DRUGS (12)
  1. FLUOROURACIL CREAM, USP 5% [Concomitant]
     Active Substance: FLUOROURACIL
  2. DAILY VITAMIN D [Concomitant]
  3. ZINC. [Concomitant]
     Active Substance: ZINC
  4. CA [Concomitant]
  5. MG [Concomitant]
     Active Substance: MAGNESIUM
  6. TRIPLE OMEGA OIL [Concomitant]
  7. PRAVASTATIN SODIUM 80 MG TABLET [Suspect]
     Active Substance: PRAVASTATIN SODIUM
     Indication: BLOOD CHOLESTEROL INCREASED
     Dosage: ?          QUANTITY:90 TABLET(S);?
     Route: 048
     Dates: start: 20200213, end: 20200218
  8. VITAMIN C [Concomitant]
     Active Substance: ASCORBIC ACID
  9. MULTI-VITAMIN [Concomitant]
     Active Substance: .ALPHA.-TOCOPHEROL ACETATE, DL-\ASCORBIC ACID\CYANOCOBALAMIN\FLUORIDE ION\FOLIC ACID\NIACIN\PYRIDOXINE\RIBOFLAVIN\THIAMINE\VITAMIN A\VITAMIN D
  10. ELIQUIS [Concomitant]
     Active Substance: APIXABAN
  11. VITAMIN B COMPLEX [Concomitant]
     Active Substance: CYANOCOBALAMIN\DEXPANTHENOL\NIACINAMIDE\PYRIDOXINE HYDROCHLORIDE\RIBOFLAVIN 5^-PHOSPHATE SODIUM\THIAMINE HYDROCHLORIDE\VITAMIN B COMPLEX
  12. GLUCOSIMINE (CHONDROITIN-MSM) [Concomitant]

REACTIONS (6)
  - Abdominal distension [None]
  - Product substitution issue [None]
  - Flatulence [None]
  - Diarrhoea [None]
  - Gastrointestinal disorder [None]
  - Eructation [None]

NARRATIVE: CASE EVENT DATE: 20200216
